FAERS Safety Report 22652609 (Version 3)
Quarter: 2023Q4

REPORT INFORMATION
  Report Type: Spontaneous
  Country: US (occurrence: US)
  Receive Date: 20230629
  Receipt Date: 20231006
  Transmission Date: 20240109
  Serious: No
  Sender: FDA-Public Use
  Company Number: US-JNJFOC-20230660660

PATIENT
  Sex: Female

DRUGS (2)
  1. SPRAVATO [Suspect]
     Active Substance: ESKETAMINE
     Indication: Depression
     Route: 045
     Dates: start: 20230608, end: 20230623
  2. SPRAVATO [Suspect]
     Active Substance: ESKETAMINE
     Dosage: PATIENT^S THIRD TREATMENT
     Route: 045

REACTIONS (3)
  - Therapeutic product effect decreased [Unknown]
  - Product packaging quantity issue [Unknown]
  - Underdose [Unknown]

NARRATIVE: CASE EVENT DATE: 20230623
